FAERS Safety Report 20210021 (Version 1)
Quarter: 2021Q4

REPORT INFORMATION
  Report Type: Spontaneous
  Country: US (occurrence: US)
  Receive Date: 20211221
  Receipt Date: 20211221
  Transmission Date: 20220303
  Serious: Yes (Hospitalization)
  Sender: FDA-Public Use
  Company Number: US-LUPIN PHARMACEUTICALS INC.-2021-24911

PATIENT
  Age: 48 Year
  Sex: Female

DRUGS (4)
  1. HYDROMORPHONE HCL [Suspect]
     Active Substance: HYDROMORPHONE HYDROCHLORIDE
     Indication: Pain
     Dosage: UNK (BASAL RATE OF 0.5 MG/H, DEMAND DOSE OF 0.5 MG, A 12 MIN LOCKOUT INTERVAL, ONE HOUR LIMIT OF 3 M
     Route: 065
  2. HYDROMORPHONE HCL [Suspect]
     Active Substance: HYDROMORPHONE HYDROCHLORIDE
     Dosage: UNK (DUE TO A MEDICATION ERROR AFTER HER LAST TITRATION, THE PATIENT RECEIVED A 5 MG/HR BASAL RATE O
     Route: 065
  3. OXYCODONE [Suspect]
     Active Substance: OXYCODONE
     Indication: Pain
     Dosage: UNK, PRN (10MG TO 20MG EVERY 4 HOURS))
     Route: 065
  4. FENTANYL [Suspect]
     Active Substance: FENTANYL
     Indication: Pain
     Dosage: 125 MICROGRAM (PER HOUR)
     Route: 062

REACTIONS (4)
  - Hyperaesthesia [Recovering/Resolving]
  - Drug ineffective [Unknown]
  - Accidental overdose [Unknown]
  - Medication error [Unknown]
